FAERS Safety Report 4723921-9 (Version None)
Quarter: 2005Q3

REPORT INFORMATION
  Report Type: 
  Country: None (occurrence: None)
  Receive Date: 20050722
  Receipt Date: 20050711
  Transmission Date: 20060218
  Serious: No
  Sender: FDA-Public Use
  Company Number: 232284K05USA

PATIENT
  Age: 60 Year
  Sex: Female

DRUGS (1)
  1. REBIF [Suspect]
     Indication: MULTIPLE SCLEROSIS
     Dosage: SUBCUTANEOUS
     Route: 058
     Dates: start: 20050110, end: 20050501

REACTIONS (8)
  - CATHETER RELATED INFECTION [None]
  - DEVICE MALFUNCTION [None]
  - FEEDING TUBE COMPLICATION [None]
  - FEELING ABNORMAL [None]
  - INJECTION SITE INFECTION [None]
  - INJECTION SITE REACTION [None]
  - INJECTION SITE SWELLING [None]
  - PURULENCE [None]
